FAERS Safety Report 9791425 (Version 2)
Quarter: 2014Q1

REPORT INFORMATION
  Report Type: Spontaneous
  Country: DE (occurrence: DE)
  Receive Date: 20140101
  Receipt Date: 20140101
  Transmission Date: 20141002
  Serious: Yes (Other)
  Sender: FDA-Public Use
  Company Number: PHHY2013DE066877

PATIENT
  Age: 82 Year
  Sex: Female
  Weight: 59 kg

DRUGS (5)
  1. TASIGNA [Suspect]
     Indication: CHRONIC MYELOID LEUKAEMIA
     Dosage: 800 MG, DAILY
     Route: 048
     Dates: start: 201304
  2. VOTUM [Concomitant]
     Indication: HYPERTENSION
     Route: 048
     Dates: start: 201203
  3. METOBETA [Concomitant]
     Indication: HYPERTENSION
     Route: 048
     Dates: start: 201203
  4. SIMVASTATIN [Concomitant]
     Indication: HYPERTENSION
     Route: 048
     Dates: start: 201203
  5. ASS [Concomitant]
     Indication: HYPERTENSION
     Route: 048
     Dates: start: 201203

REACTIONS (3)
  - Major depression [Recovered/Resolved]
  - Fatigue [Not Recovered/Not Resolved]
  - Pruritus [Recovering/Resolving]
